FAERS Safety Report 5331319-8 (Version None)
Quarter: 2007Q2

REPORT INFORMATION
  Report Type: 
  Country: None (occurrence: None)
  Receive Date: 20070522
  Receipt Date: 20070518
  Transmission Date: 20071010
  Serious: Yes (Other)
  Sender: FDA-Public Use
  Company Number: US-ASTRAZENECA-2007UW12390

PATIENT

DRUGS (2)
  1. NEXIUM [Suspect]
     Route: 048
  2. PROTON-PUMP INHIBITOR [Concomitant]

REACTIONS (1)
  - CARCINOID TUMOUR OF THE STOMACH [None]
